FAERS Safety Report 5754100-4 (Version None)
Quarter: 2008Q2

REPORT INFORMATION
  Report Type: 
  Country: None (occurrence: None)
  Receive Date: 20080530
  Receipt Date: 20080526
  Transmission Date: 20081010
  Serious: Yes (Life-Threatening, Other)
  Sender: FDA-Public Use
  Company Number: PHHY2008IT08681

PATIENT
  Sex: Male

DRUGS (2)
  1. CYCLOSPORINE [Suspect]
  2. DRUG THERAPY NOS [Suspect]

REACTIONS (5)
  - ANAEMIA [None]
  - DERMATITIS BULLOUS [None]
  - DIABETES MELLITUS [None]
  - HEPATITIS CHOLESTATIC [None]
  - TOXIC EPIDERMAL NECROLYSIS [None]
